FAERS Safety Report 18135117 (Version 1)
Quarter: 2020Q3

REPORT INFORMATION
  Report Type: Spontaneous
  Country: US (occurrence: US)
  Receive Date: 20200811
  Receipt Date: 20200811
  Transmission Date: 20201103
  Serious: Yes (Hospitalization)
  Sender: FDA-Public Use
  Company Number: None

PATIENT
  Age: 77 Year
  Sex: Female

DRUGS (11)
  1. HYDRALAZINE [Concomitant]
     Active Substance: HYDRALAZINE HYDROCHLORIDE
  2. CALCUIM [Concomitant]
  3. LISINOPRIL. [Concomitant]
     Active Substance: LISINOPRIL
  4. ASPERCREME NOS [Concomitant]
     Active Substance: MENTHOL\TROLAMINE SALICYLATE
  5. ASPIRIN. [Concomitant]
     Active Substance: ASPIRIN
  6. MOMETASONE [Concomitant]
     Active Substance: MOMETASONE
  7. SPRYCEL [Suspect]
     Active Substance: DASATINIB
     Indication: MYELOID LEUKAEMIA
     Route: 048
     Dates: start: 20180118
  8. LOSARTAN. [Concomitant]
     Active Substance: LOSARTAN
  9. NYSTATIN. [Concomitant]
     Active Substance: NYSTATIN
  10. PROAIR HFA [Concomitant]
     Active Substance: ALBUTEROL SULFATE
  11. FERREX [Concomitant]
     Active Substance: FERRIC POLYSACCHARIDE COMPLEX

REACTIONS (3)
  - Product dose omission issue [None]
  - Dizziness [None]
  - Abdominal pain [None]

NARRATIVE: CASE EVENT DATE: 20200520
